FAERS Safety Report 14559833 (Version 2)
Quarter: 2018Q1

REPORT INFORMATION
  Report Type: Spontaneous
  Country: US (occurrence: US)
  Receive Date: 20180221
  Receipt Date: 20180305
  Transmission Date: 20180509
  Serious: Yes (Hospitalization, Other)
  Sender: FDA-Public Use
  Company Number: US-BEH-2018087939

PATIENT
  Age: 16 Year
  Sex: Female

DRUGS (2)
  1. HAEMATE P [Suspect]
     Active Substance: ANTIHEMOPHILIC FACTOR HUMAN
     Dosage: 2150 RCOF IU, QMT (ON FIRST DAY OF MONTHLY CYCLE AND THEN EVERY OTHER DAY)
     Route: 042
     Dates: start: 20130122
  2. HAEMATE P [Suspect]
     Active Substance: ANTIHEMOPHILIC FACTOR HUMAN
     Indication: VON WILLEBRAND^S DISEASE
     Dosage: 2150 RCOF IU, QMT (ON FIRST DAY OF MONTHLY CYCLE AND THEN EVERY OTHER DAY)
     Route: 042
     Dates: start: 20130122

REACTIONS (1)
  - Transfusion [Unknown]

NARRATIVE: CASE EVENT DATE: 20180129
